FAERS Safety Report 8684005 (Version 2)
Quarter: 2013Q4

REPORT INFORMATION
  Report Type: Spontaneous
  Country: FR (occurrence: FR)
  Receive Date: 20120726
  Receipt Date: 20131108
  Transmission Date: 20140711
  Serious: Yes (Hospitalization, Other)
  Sender: FDA-Public Use
  Company Number: FR-009507513-1207FRA004106

PATIENT
  Age: 41 Year
  Sex: Female

DRUGS (12)
  1. NOXAFIL [Suspect]
     Indication: PRODUCT USED FOR UNKNOWN INDICATION
     Dosage: 200 MG, TID
     Route: 048
     Dates: start: 20120112, end: 20120130
  2. TAZOCILLINE [Suspect]
     Indication: PYREXIA
     Dosage: 4 G, TID
     Route: 042
     Dates: start: 20120120, end: 20120210
  3. VESANOID [Concomitant]
     Indication: PRODUCT USED FOR UNKNOWN INDICATION
     Dosage: 40 MG, BID
     Route: 048
     Dates: start: 20120112
  4. LUTENYL [Concomitant]
     Indication: PRODUCT USED FOR UNKNOWN INDICATION
     Dosage: 10 MG, QAM
     Route: 048
     Dates: start: 20120112
  5. FUNGIZONE [Concomitant]
     Indication: PRODUCT USED FOR UNKNOWN INDICATION
     Dosage: 1 DF, QAM
     Dates: start: 20120112
  6. STILNOX [Concomitant]
     Indication: PRODUCT USED FOR UNKNOWN INDICATION
     Dosage: 10 MG, QD
     Route: 048
     Dates: start: 20120112
  7. PERFALGAN [Concomitant]
     Indication: PRODUCT USED FOR UNKNOWN INDICATION
     Dosage: 4 G, QD
     Route: 042
     Dates: start: 20120112
  8. FUROSEMIDE [Concomitant]
     Indication: PRODUCT USED FOR UNKNOWN INDICATION
     Dosage: 20 MG, QD
     Route: 042
     Dates: start: 20120112
  9. POLARAMINE [Concomitant]
     Indication: PRODUCT USED FOR UNKNOWN INDICATION
     Dosage: 5 MG, TID
     Route: 042
     Dates: start: 20120112
  10. VANCOMYCIN [Concomitant]
     Indication: PRODUCT USED FOR UNKNOWN INDICATION
     Dosage: 3 G, QD
     Route: 042
     Dates: start: 20120124, end: 20120208
  11. ARACYTINE [Concomitant]
     Indication: CHEMOTHERAPY
     Dosage: 200 MG/M2, UNKNOWN
     Route: 042
     Dates: start: 20120117
  12. IDARUBICIN HYDROCHLORIDE [Concomitant]
     Indication: CHEMOTHERAPY
     Dosage: 12 MG/M2, UNKNOWN
     Route: 042
     Dates: start: 20120117

REACTIONS (1)
  - Pancreatitis acute [Recovered/Resolved]
